FAERS Safety Report 8366846-2 (Version None)
Quarter: 2012Q1

REPORT INFORMATION
  Report Type: 
  Country: None (occurrence: None)
  Receive Date: 20120323
  Receipt Date: 20111020
  Transmission Date: 20120608
  Serious: Yes (Other)
  Sender: FDA-Public Use
  Company Number: 163-21880-11040676

PATIENT
  Sex: Male

DRUGS (3)
  1. REVLIMID [Suspect]
     Indication: MULTIPLE MYELOMA
     Dosage: 25 MG, DAILY X 21 DAYS, PO, 10 MG, DAILY X 21 DAYS, PO
     Route: 048
     Dates: start: 20100901
  2. REVLIMID [Suspect]
     Indication: MULTIPLE MYELOMA
     Dosage: 25 MG, DAILY X 21 DAYS, PO, 10 MG, DAILY X 21 DAYS, PO
     Route: 048
     Dates: start: 20080121
  3. REVLIMID [Suspect]

REACTIONS (2)
  - NEUROPATHY PERIPHERAL [None]
  - TEMPERATURE INTOLERANCE [None]
